FAERS Safety Report 20573084 (Version 2)
Quarter: 2022Q2

REPORT INFORMATION
  Report Type: Spontaneous
  Country: IT (occurrence: IT)
  Receive Date: 20220309
  Receipt Date: 20220622
  Transmission Date: 20220721
  Serious: Yes (Hospitalization, Other)
  Sender: FDA-Public Use
  Company Number: IT-MYLANLABS-2022M1005715

PATIENT
  Age: 79 Year
  Sex: Male

DRUGS (5)
  1. FLUDROCORTISONE [Suspect]
     Active Substance: FLUDROCORTISONE
     Indication: Autonomic nervous system imbalance
     Dosage: UNK
  2. AZITHROMYCIN [Suspect]
     Active Substance: AZITHROMYCIN
     Indication: COVID-19
     Dosage: UNK
  3. CEFTRIAXONE [Suspect]
     Active Substance: CEFTRIAXONE
     Indication: Product used for unknown indication
     Dosage: UNK
  4. REMDESIVIR [Suspect]
     Active Substance: REMDESIVIR
     Indication: COVID-19
     Dosage: 200 MILLIGRAM (200 MG, ON THE FIRST DAY, FOLLOWED FOR THE NEXT 4 DAYSBY 100 MG)
     Route: 042
  5. INSULIN NOS [Suspect]
     Active Substance: INSULIN NOS
     Indication: COVID-19
     Dosage: UNK

REACTIONS (3)
  - Guillain-Barre syndrome [Recovered/Resolved]
  - Product use in unapproved indication [Unknown]
  - Off label use [Unknown]
